FAERS Safety Report 12708877 (Version 1)
Quarter: 2016Q3

REPORT INFORMATION
  Report Type: Spontaneous
  Country: US (occurrence: US)
  Receive Date: 20160901
  Receipt Date: 20160901
  Transmission Date: 20161109
  Serious: No
  Sender: FDA-Public Use
  Company Number: US-JAZZ-2016-US-008195

PATIENT
  Sex: Female

DRUGS (36)
  1. XYREM [Suspect]
     Active Substance: SODIUM OXYBATE
     Indication: NARCOLEPSY
     Dosage: 3 G, BID
     Route: 048
     Dates: start: 200403, end: 200404
  2. XYREM [Suspect]
     Active Substance: SODIUM OXYBATE
     Dosage: 6 G, FIRST DOSE
     Route: 048
     Dates: start: 201211
  3. BOTOX [Concomitant]
     Active Substance: ONABOTULINUMTOXINA
  4. PROAIR HFA [Concomitant]
     Active Substance: ALBUTEROL SULFATE
  5. REGLAN [Concomitant]
     Active Substance: METOCLOPRAMIDE HYDROCHLORIDE
  6. IPRATROPIUM [Concomitant]
     Active Substance: IPRATROPIUM
  7. MIRALAX [Concomitant]
     Active Substance: POLYETHYLENE GLYCOL 3350
  8. PANTOPRAZOLE SODIUM. [Concomitant]
     Active Substance: PANTOPRAZOLE SODIUM
  9. RESTASIS [Concomitant]
     Active Substance: CYCLOSPORINE
  10. ASPIRIN. [Concomitant]
     Active Substance: ASPIRIN
  11. NUTROPIN AQ [Concomitant]
     Active Substance: SOMATROPIN
  12. SINGULAIR [Concomitant]
     Active Substance: MONTELUKAST SODIUM
  13. PERCOCET [Concomitant]
     Active Substance: ACETAMINOPHEN\OXYCODONE HYDROCHLORIDE
  14. XYREM [Suspect]
     Active Substance: SODIUM OXYBATE
     Dosage: DOSE ADJUSTMENTS
     Route: 048
  15. HUMATROPE [Concomitant]
     Active Substance: SOMATROPIN
  16. CYMBALTA [Concomitant]
     Active Substance: DULOXETINE HYDROCHLORIDE
  17. SYNTHROID [Concomitant]
     Active Substance: LEVOTHYROXINE SODIUM
  18. XYREM [Suspect]
     Active Substance: SODIUM OXYBATE
     Dosage: 3 G, SECOND DOSE
     Route: 048
     Dates: start: 201211
  19. TOVIAZ [Concomitant]
     Active Substance: FESOTERODINE FUMARATE
  20. CLIMARA [Concomitant]
     Active Substance: ESTRADIOL
  21. FLUCONAZOLE. [Concomitant]
     Active Substance: FLUCONAZOLE
  22. PROMETHAZINE [Concomitant]
     Active Substance: PROMETHAZINE\PROMETHAZINE HYDROCHLORIDE
  23. LORAZEPAM. [Concomitant]
     Active Substance: LORAZEPAM
  24. MULTIVITAMINS [Concomitant]
     Active Substance: VITAMINS
  25. KLOR-CON [Concomitant]
     Active Substance: POTASSIUM CHLORIDE
  26. VITAMIN D3 [Concomitant]
     Active Substance: CHOLECALCIFEROL
  27. FUROSEMIDE. [Concomitant]
     Active Substance: FUROSEMIDE
  28. BIOTIN [Concomitant]
     Active Substance: BIOTIN
  29. MOMETASONE FUROATE. [Concomitant]
     Active Substance: MOMETASONE FUROATE
  30. PLAVIX [Concomitant]
     Active Substance: CLOPIDOGREL BISULFATE
  31. TOPROL XL [Concomitant]
     Active Substance: METOPROLOL SUCCINATE
  32. PRIMIDONE. [Concomitant]
     Active Substance: PRIMIDONE
  33. TRIAMCINE [Concomitant]
  34. SIMVASTATIN. [Concomitant]
     Active Substance: SIMVASTATIN
  35. ACETAZOLAMIDE. [Concomitant]
     Active Substance: ACETAZOLAMIDE
  36. POTASSIUM CL [Concomitant]
     Active Substance: POTASSIUM CHLORIDE

REACTIONS (2)
  - Pre-existing condition improved [Unknown]
  - Therapeutic response unexpected [Unknown]
